FAERS Safety Report 21022264 (Version 1)
Quarter: 2022Q2

REPORT INFORMATION
  Report Type: Spontaneous
  Country: US (occurrence: US)
  Receive Date: 20220629
  Receipt Date: 20220629
  Transmission Date: 20220720
  Serious: No
  Sender: FDA-Public Use
  Company Number: US-GLENMARK PHARMACEUTICALS-2022GMK072016

PATIENT

DRUGS (2)
  1. CLOBETASOL PROPIONATE [Suspect]
     Active Substance: CLOBETASOL PROPIONATE
     Indication: Vulvovaginal pruritus
     Dosage: UNK, BID (TWO TIMES PER DAY MORNING AND NIGHT FOR 2 WEEKS AND ONCE A DAY FOR 2 WEEKS AND TWICE A WEE
     Route: 061
  2. CLOBETASOL PROPIONATE [Suspect]
     Active Substance: CLOBETASOL PROPIONATE
     Indication: Vulvovaginal burning sensation

REACTIONS (1)
  - Product use in unapproved indication [Unknown]
